FAERS Safety Report 4618039-X (Version None)
Quarter: 2005Q2

REPORT INFORMATION
  Report Type: 
  Country: None (occurrence: None)
  Receive Date: 20050316
  Receipt Date: 20041223
  Transmission Date: 20051028
  Serious: Yes (Hospitalization)
  Sender: FDA-Public Use
  Company Number: S04-USA-07142-01

PATIENT
  Age: 20 Year
  Sex: Male

DRUGS (4)
  1. LEXAPRO [Suspect]
     Indication: DEPRESSION
     Dosage: 10 MG QD PO
     Route: 048
     Dates: start: 20040923, end: 20041023
  2. LEXAPRO [Suspect]
     Dosage: 30 TABLET ONCE PO
     Route: 048
     Dates: start: 20041025, end: 20041025
  3. ACCELERON [Suspect]
     Dosage: 30 TABLET ONCE PO
     Route: 048
     Dates: start: 20041025, end: 20041025
  4. ALCOHOL [Suspect]
     Dates: start: 20041001

REACTIONS (3)
  - CONFUSIONAL STATE [None]
  - INTENTIONAL MISUSE [None]
  - SUICIDE ATTEMPT [None]
